FAERS Safety Report 22338322 (Version 1)
Quarter: 2023Q2

REPORT INFORMATION
  Report Type: Spontaneous
  Country: NP (occurrence: NP)
  Receive Date: 20230518
  Receipt Date: 20230518
  Transmission Date: 20230721
  Serious: Yes (Hospitalization)
  Sender: FDA-Public Use
  Company Number: NP-ELI_LILLY_AND_COMPANY-NP202305007500

PATIENT
  Age: 69 Year
  Sex: Male

DRUGS (1)
  1. HUMALOG MIX50/50 [Suspect]
     Active Substance: INSULIN LISPRO
     Indication: Diabetes mellitus
     Dosage: 62 U, DAILY
     Route: 065
     Dates: start: 2011

REACTIONS (2)
  - Diabetic nephropathy [Unknown]
  - Eye disorder [Unknown]
